FAERS Safety Report 7876987-1 (Version None)
Quarter: 2011Q4

REPORT INFORMATION
  Report Type: 
  Country: None (occurrence: None)
  Receive Date: 20111031
  Receipt Date: 20111021
  Transmission Date: 20120403
  Serious: Yes (Hospitalization)
  Sender: FDA-Public Use
  Company Number: PHHY2011GB86230

PATIENT
  Age: 36 Year
  Sex: Female
  Weight: 42 kg

DRUGS (5)
  1. LORATADINE [Concomitant]
     Dates: start: 20110822, end: 20110823
  2. PROCYCLIDINE HYDROCHLORIDE 2MG TAB [Concomitant]
     Dates: start: 20110920
  3. MOVIPREP [Concomitant]
     Dates: start: 20110919
  4. GABAPENTIN [Concomitant]
     Dates: start: 20110822
  5. TRAMADOL HCL [Suspect]
     Dosage: 100 MG, UNK
     Dates: start: 20110822

REACTIONS (1)
  - DYSTONIA [None]
